FAERS Safety Report 7349594-7 (Version None)
Quarter: 2011Q1

REPORT INFORMATION
  Report Type: 
  Country: None (occurrence: None)
  Receive Date: 20110314
  Receipt Date: 20110309
  Transmission Date: 20110831
  Serious: Yes (Other)
  Sender: FDA-Public Use
  Company Number: US-ASTRAZENECA-2006UW26180

PATIENT
  Age: 17782 Day
  Sex: Female
  Weight: 68 kg

DRUGS (25)
  1. LISINOPRIL [Concomitant]
     Dosage: 10 MG- 20 MG
     Dates: start: 20030818
  2. SEROQUEL [Suspect]
     Route: 048
     Dates: start: 20020918, end: 20050117
  3. ZESTORETIC [Concomitant]
     Indication: HYPERTENSION
     Dosage: 10/12.5 MG DAILY
     Route: 048
     Dates: start: 20010820
  4. SEROQUEL [Suspect]
     Route: 048
     Dates: start: 20020918, end: 20050117
  5. FLEXERIL [Concomitant]
     Dates: start: 20030724
  6. LEXAPRO [Concomitant]
     Dates: start: 20040724
  7. ATIVAN [Concomitant]
     Dates: start: 19930517
  8. SEROQUEL [Suspect]
     Indication: DEPRESSION
     Dosage: 25 MG- 50 MG NIGHT TIME, 25 MG THRICE A DAY AS REQUIRED
     Route: 048
     Dates: start: 20020812, end: 20050317
  9. CELEXA [Concomitant]
     Indication: DEPRESSION
     Dosage: 20 MG - 80 MG
     Dates: start: 20010306
  10. SEROQUEL [Suspect]
     Route: 048
     Dates: start: 20020918, end: 20050117
  11. RISPERDAL [Concomitant]
     Dates: start: 20050101
  12. LITHIUM CARBONATE [Concomitant]
  13. SEROQUEL [Suspect]
     Indication: POST-TRAUMATIC STRESS DISORDER
     Dosage: 25 MG- 50 MG NIGHT TIME, 25 MG THRICE A DAY AS REQUIRED
     Route: 048
     Dates: start: 20020812, end: 20050317
  14. SEROQUEL [Suspect]
     Indication: INSOMNIA
     Dosage: 25 MG- 50 MG NIGHT TIME, 25 MG THRICE A DAY AS REQUIRED
     Route: 048
     Dates: start: 20020812, end: 20050317
  15. NAVANE [Concomitant]
     Dates: start: 20050101
  16. METFORMIN [Concomitant]
     Indication: DIABETES MELLITUS
     Dosage: 500 MG - 1000 MG
     Route: 048
     Dates: start: 20051205
  17. EFFEXOR [Concomitant]
     Dosage: 75 MG - 225 MG
     Dates: start: 20000110
  18. KLONOPIN [Concomitant]
     Dosage: 1 MG NIGHT, ONE HALF AS REQUIRED
     Dates: start: 19991222
  19. SEROQUEL [Suspect]
     Indication: AGITATION
     Dosage: 25 MG- 50 MG NIGHT TIME, 25 MG THRICE A DAY AS REQUIRED
     Route: 048
     Dates: start: 20020812, end: 20050317
  20. XANAX [Concomitant]
     Route: 048
     Dates: start: 19991222
  21. ZOLOFT [Concomitant]
     Dates: start: 19991222
  22. SEROQUEL [Suspect]
     Route: 048
     Dates: start: 20020918, end: 20050117
  23. RISPERDAL [Concomitant]
     Indication: AFFECTIVE DISORDER
     Dates: start: 20030306, end: 20050117
  24. LAMICTAL [Concomitant]
     Dosage: 25 MG - 300 MG
     Dates: start: 20020724
  25. MERIDIA [Concomitant]
     Indication: WEIGHT CONTROL
     Dates: start: 20040303

REACTIONS (5)
  - OBESITY [None]
  - NEUROPATHY PERIPHERAL [None]
  - PANCREATITIS [None]
  - TYPE 2 DIABETES MELLITUS [None]
  - MULTIPLE ALLERGIES [None]
